FAERS Safety Report 22305173 (Version 2)
Quarter: 2023Q2

REPORT INFORMATION
  Report Type: Spontaneous
  Country: SK (occurrence: SK)
  Receive Date: 20230510
  Receipt Date: 20230530
  Transmission Date: 20230722
  Serious: Yes (Other)
  Sender: FDA-Public Use
  Company Number: SK-PFIZER INC-PV202300074976

PATIENT
  Age: 39 Year
  Sex: Female

DRUGS (5)
  1. LETROZOLE [Suspect]
     Active Substance: LETROZOLE
     Indication: Breast cancer metastatic
     Dosage: 2.5 MILLIGRAM, QD, DAILY
     Route: 065
     Dates: start: 20221108
  2. PALBOCICLIB [Suspect]
     Active Substance: PALBOCICLIB
     Indication: Breast cancer metastatic
     Dosage: 125 MG, CYCLIC DAILY,FOR 1-21 DAY, CYCLE 28 DAYS
     Route: 065
     Dates: start: 20221108
  3. PALBOCICLIB [Suspect]
     Active Substance: PALBOCICLIB
     Dosage: DAILY, FOR 1-21 DAY,CYCLE 28 DAYS FROM 4TH CYCLE
     Route: 065
     Dates: start: 20230214
  4. LEVOTHYROXINE [Concomitant]
     Active Substance: LEVOTHYROXINE
     Indication: Hypothyroidism
     Dosage: 50 MICROGRAM, QD (50 UG, 1X/DAY)
     Route: 065
  5. GOSERELIN [Concomitant]
     Active Substance: GOSERELIN
     Indication: Breast cancer metastatic
     Dosage: 3.6 MG, CYCLICAL, EVERY 28 DAYS
     Route: 058
     Dates: start: 20221108

REACTIONS (2)
  - Neutropenia [Recovered/Resolved]
  - Neoplasm progression [Recovered/Resolved]

NARRATIVE: CASE EVENT DATE: 20230112
